FAERS Safety Report 5403204-4 (Version None)
Quarter: 2007Q3

REPORT INFORMATION
  Report Type: 
  Country: None (occurrence: None)
  Receive Date: 20070801
  Receipt Date: 20070723
  Transmission Date: 20080115
  Serious: Yes (Hospitalization, Disabling)
  Sender: FDA-Public Use
  Company Number: US-BAXTER-2007BH006533

PATIENT
  Age: 29 Year
  Sex: Female
  Weight: 59 kg

DRUGS (4)
  1. PHENERGAN HCL [Suspect]
     Indication: NAUSEA
     Route: 042
     Dates: start: 20060401, end: 20060401
  2. PHENERGAN HCL [Suspect]
     Dosage: DOSE UNIT:UNKNOWN
     Route: 042
     Dates: start: 20060401, end: 20060801
  3. DILAUDID [Concomitant]
     Indication: PAIN
     Route: 042
     Dates: start: 20060401, end: 20060401
  4. SODIUM CHLORIDE 0.9% [Concomitant]
     Indication: MEDICATION DILUTION
     Route: 042
     Dates: start: 20060401, end: 20060401

REACTIONS (7)
  - ARTERIAL INJURY [None]
  - DRUG ADMINISTRATION ERROR [None]
  - GANGRENE [None]
  - HYPOAESTHESIA [None]
  - INFUSION SITE PAIN [None]
  - PAIN IN EXTREMITY [None]
  - POSTOPERATIVE WOUND INFECTION [None]
